FAERS Safety Report 25888886 (Version 3)
Quarter: 2025Q4

REPORT INFORMATION
  Report Type: Report from Study
  Country: EU (occurrence: EU)
  Receive Date: 20251007
  Receipt Date: 20251104
  Transmission Date: 20260118
  Serious: Yes (Hospitalization, Other)
  Sender: INSMED
  Company Number: EU-INSMED, INC.-2025-03003-FR

PATIENT
  Sex: Female
  Weight: 55 kg

DRUGS (2)
  1. ARIKAYCE [Suspect]
     Active Substance: AMIKACIN
     Indication: Atypical mycobacterial infection
     Dosage: 590 MILLIGRAM, QD
     Route: 055
     Dates: start: 20250728, end: 20250925
  2. ALBUTEROL [Concomitant]
     Active Substance: ALBUTEROL
     Indication: Product used for unknown indication
     Dosage: UNK, BID
     Route: 065

REACTIONS (22)
  - Hospitalisation [Unknown]
  - Dependence on oxygen therapy [Not Recovered/Not Resolved]
  - Dyspnoea at rest [Unknown]
  - Dyspnoea exertional [Unknown]
  - Mobility decreased [Unknown]
  - Drug intolerance [Unknown]
  - Pulmonary pain [Not Recovered/Not Resolved]
  - Dyspepsia [Recovering/Resolving]
  - Loss of personal independence in daily activities [Not Recovered/Not Resolved]
  - Abdominal pain [Recovering/Resolving]
  - Cough [Recovering/Resolving]
  - Diarrhoea [Recovering/Resolving]
  - Dyspnoea [Not Recovered/Not Resolved]
  - Fatigue [Not Recovered/Not Resolved]
  - Bronchospasm [Recovering/Resolving]
  - Oropharyngeal pain [Recovering/Resolving]
  - Nausea [Recovering/Resolving]
  - Dysphonia [Not Recovered/Not Resolved]
  - Incorrect product administration duration [Unknown]
  - Device issue [Unknown]
  - Device connection issue [Unknown]
  - Drug dose omission by device [Unknown]

NARRATIVE: CASE EVENT DATE: 20250101
